FAERS Safety Report 10898905 (Version 1)
Quarter: 2015Q1

REPORT INFORMATION
  Report Type: Report from Study
  Country: IT (occurrence: IT)
  Receive Date: 20150309
  Receipt Date: 20150309
  Transmission Date: 20150721
  Serious: Yes (Other)
  Sender: FDA-Public Use
  Company Number: IT-PFIZER INC-2015078477

PATIENT
  Sex: Female

DRUGS (1)
  1. ESTRAMUSTINE SODIUM PHOSPHATE [Suspect]
     Active Substance: ESTRAMUSTINE PHOSPHATE SODIUM
     Indication: BREAST CANCER METASTATIC
     Dosage: 140 MG, ONE TABLET 1 H BEFORE OR 2 H AFTER THE MAIN MEAL
     Route: 048

REACTIONS (2)
  - Myocardial ischaemia [Unknown]
  - Cardiotoxicity [Unknown]
